FAERS Safety Report 17226662 (Version 6)
Quarter: 2021Q3

REPORT INFORMATION
  Report Type: Spontaneous
  Country: DE (occurrence: DE)
  Receive Date: 20200102
  Receipt Date: 20210909
  Transmission Date: 20211014
  Serious: Yes (Other)
  Sender: FDA-Public Use
  Company Number: DE-AUROBINDO-AUR-APL-2019-022638

PATIENT
  Sex: Female
  Weight: 65 kg

DRUGS (7)
  1. KISQALI [Suspect]
     Active Substance: RIBOCICLIB
     Dosage: 400 MILLIGRAM, EVERY 3 WEEKS (400 MG, Q3W)
     Route: 048
     Dates: start: 20190327, end: 20190408
  2. KISQALI [Suspect]
     Active Substance: RIBOCICLIB
     Dosage: 200 MILLIGRAM, EVERY 3 WEEKS
     Route: 048
     Dates: start: 20190831
  3. LETROZOLE. [Suspect]
     Active Substance: LETROZOLE
     Indication: BREAST CANCER METASTATIC
     Dosage: 2.5 MILLIGRAM, ONCE A DAY (2.5 MG, QD)
     Route: 048
     Dates: start: 20190213, end: 20200507
  4. KISQALI [Suspect]
     Active Substance: RIBOCICLIB
     Indication: BREAST CANCER METASTATIC
     Dosage: 600 MILLIGRAM, EVERY THREE WEEKS (600 MG, Q3W)
     Route: 048
     Dates: start: 20190213, end: 20190312
  5. KISQALI [Suspect]
     Active Substance: RIBOCICLIB
     Dosage: 400 MILLIGRAM EVERY 3 WEEK (400 MG, Q3W)
     Route: 048
     Dates: start: 20190831
  6. KISQALI [Suspect]
     Active Substance: RIBOCICLIB
     Dosage: 400 MILLIGRAM,EVERY 3 WEEKS
     Route: 048
     Dates: start: 20190425, end: 20190522
  7. ANASTROZOLE. [Suspect]
     Active Substance: ANASTROZOLE
     Indication: BREAST CANCER
     Dosage: 1 MILLIGRAM, ONCE A DAY (1 MG, QD (FROM 08 MAY 2020))
     Route: 048
     Dates: start: 20200508

REACTIONS (12)
  - Neutropenia [Recovered/Resolved]
  - Hot flush [Recovered/Resolved]
  - Bone pain [Recovered/Resolved]
  - Sleep disorder [Recovered/Resolved]
  - Arthropathy [Not Recovered/Not Resolved]
  - Leukopenia [Recovered/Resolved]
  - Musculoskeletal discomfort [Not Recovered/Not Resolved]
  - Fatigue [Not Recovered/Not Resolved]
  - Oropharyngeal pain [Recovered/Resolved]
  - Nausea [Recovered/Resolved]
  - Pneumonitis [Recovered/Resolved]
  - Cough [Recovered/Resolved]

NARRATIVE: CASE EVENT DATE: 20190313
